FAERS Safety Report 5099306-5 (Version None)
Quarter: 2006Q3

REPORT INFORMATION
  Report Type: 
  Country: None (occurrence: None)
  Receive Date: 20060728
  Receipt Date: 20060424
  Transmission Date: 20061208
  Serious: No
  Sender: FDA-Public Use
  Company Number: COT_0512_2006

PATIENT
  Age: 49 Year
  Sex: Male
  Weight: 78.4723 kg

DRUGS (14)
  1. VENTAVIS [Suspect]
     Indication: PULMONARY HYPERTENSION
     Dosage: 5 MCG 6XD IH
     Dates: start: 20060201
  2. XANAX [Concomitant]
  3. COMBIVENT [Concomitant]
  4. ALLEGRA [Concomitant]
  5. BUMETANIDE [Concomitant]
  6. OMEPRAZOLE [Concomitant]
  7. K-DUR 10 [Concomitant]
  8. TYLENOL [Concomitant]
  9. SPIRONOLACTONE [Concomitant]
  10. SILDENAFIL [Concomitant]
  11. ADVAIR DISKUS 100/50 [Concomitant]
  12. WELLBUTRIN [Concomitant]
  13. COUMADIN [Concomitant]
  14. OXYGEN [Concomitant]

REACTIONS (2)
  - PHARYNGOLARYNGEAL PAIN [None]
  - STOMATITIS [None]
